FAERS Safety Report 10453034 (Version 1)
Quarter: 2014Q3

REPORT INFORMATION
  Report Type: Spontaneous
  Country: US (occurrence: None)
  Receive Date: 20140912
  Receipt Date: 20140912
  Transmission Date: 20150326
  Serious: Yes (Life-Threatening, Hospitalization, Disabling)
  Sender: FDA-Public Use
  Company Number: None

PATIENT
  Age: 57 Year
  Sex: Female
  Weight: 56.7 kg

DRUGS (1)
  1. AVASTIN [Suspect]
     Active Substance: BEVACIZUMAB
     Indication: OVARIAN CANCER RECURRENT
     Dosage: INFUSION 2X MONTH INTO A VEIN
     Route: 042

REACTIONS (6)
  - Posterior reversible encephalopathy syndrome [None]
  - Subarachnoid haemorrhage [None]
  - Convulsion [None]
  - Amnesia [None]
  - Migraine [None]
  - Vision blurred [None]

NARRATIVE: CASE EVENT DATE: 20140812
